FAERS Safety Report 23697293 (Version 1)
Quarter: 2024Q2

REPORT INFORMATION
  Report Type: Spontaneous
  Country: US (occurrence: US)
  Receive Date: 20240402
  Receipt Date: 20240402
  Transmission Date: 20240716
  Serious: Yes (Hospitalization)
  Sender: FDA-Public Use
  Company Number: US-BRISTOL-MYERS SQUIBB COMPANY-2024-050443

PATIENT
  Age: 85 Year
  Sex: Male

DRUGS (1)
  1. ELIQUIS [Suspect]
     Active Substance: APIXABAN
     Indication: Monoclonal gammopathy
     Route: 048

REACTIONS (4)
  - Prostatic disorder [Unknown]
  - Haemorrhage [Unknown]
  - Hypotension [Unknown]
  - Off label use [Unknown]
